FAERS Safety Report 11849417 (Version 1)
Quarter: 2015Q4

REPORT INFORMATION
  Report Type: Spontaneous
  Country: PT (occurrence: PT)
  Receive Date: 20151218
  Receipt Date: 20151218
  Transmission Date: 20160305
  Serious: Yes (Other)
  Sender: FDA-Public Use
  Company Number: PT-MYLANLABS-2015M1045506

PATIENT

DRUGS (2)
  1. AZATHIOPRINE. [Concomitant]
     Active Substance: AZATHIOPRINE
     Indication: PULMONARY HAEMOSIDEROSIS
     Route: 065
  2. HYDROXYCHLOROQUINE [Suspect]
     Active Substance: HYDROXYCHLOROQUINE
     Indication: PULMONARY HAEMOSIDEROSIS
     Route: 065

REACTIONS (3)
  - Osteoporosis [Unknown]
  - Deafness neurosensory [Unknown]
  - Cushing^s syndrome [Unknown]
